FAERS Safety Report 8489730-2 (Version None)
Quarter: 2012Q3

REPORT INFORMATION
  Report Type: 
  Country: None (occurrence: None)
  Receive Date: 20120705
  Receipt Date: 20120628
  Transmission Date: 20120928
  Serious: Yes (Hospitalization)
  Sender: FDA-Public Use
  Company Number: FR-GLAXOSMITHKLINE-B0811273A

PATIENT
  Sex: Female
  Weight: 60 kg

DRUGS (1)
  1. LAMICTAL [Suspect]
     Indication: EPILEPSY
     Route: 048
     Dates: start: 20111101, end: 20120101

REACTIONS (8)
  - DRUG RASH WITH EOSINOPHILIA AND SYSTEMIC SYMPTOMS [None]
  - RASH GENERALISED [None]
  - XEROSIS [None]
  - PULMONARY EMBOLISM [None]
  - SKIN EXFOLIATION [None]
  - PRURITUS [None]
  - SKIN BACTERIAL INFECTION [None]
  - LYMPHADENOPATHY [None]
